FAERS Safety Report 9304232 (Version 2)
Quarter: 2013Q2

REPORT INFORMATION
  Report Type: Spontaneous
  Country: DE (occurrence: DE)
  Receive Date: 20130522
  Receipt Date: 20130530
  Transmission Date: 20140414
  Serious: Yes (Life-Threatening, Hospitalization, Other)
  Sender: FDA-Public Use
  Company Number: DE-PFIZER INC-2013129996

PATIENT
  Age: 12 Year
  Sex: Female
  Weight: 44 kg

DRUGS (3)
  1. FASTJEKT [Suspect]
     Indication: FOOD ALLERGY
     Dosage: UNK
  2. SALBUTAMOL [Concomitant]
     Indication: FOOD ALLERGY
     Dosage: 2 DOSAGE FORMS (PUFFS) DAILY IN CASE OR EMERGENCY
     Route: 055
  3. CETIRIZINE [Concomitant]
     Indication: FOOD ALLERGY
     Dosage: 1 TABLET DAILY IN CASE OR EMERGENCY

REACTIONS (7)
  - Device failure [Unknown]
  - Dyspnoea [Unknown]
  - Lip blister [Unknown]
  - Pharyngeal oedema [Unknown]
  - Nasal oedema [Unknown]
  - Vomiting [Unknown]
  - Asthenia [Unknown]
